FAERS Safety Report 21929491 (Version 2)
Quarter: 2023Q1

REPORT INFORMATION
  Report Type: Other
  Country: US (occurrence: None)
  Receive Date: 20230131
  Receipt Date: 20230215
  Transmission Date: 20230417
  Serious: Yes (Other)
  Sender: FDA-Public Use
  Company Number: US-ROCHE-3269297

PATIENT
  Age: 44 Year
  Sex: Female
  Weight: 87.168 kg

DRUGS (3)
  1. OCREVUS [Suspect]
     Active Substance: OCRELIZUMAB
     Indication: Multiple sclerosis
     Route: 042
     Dates: start: 202210
  2. LEVAQUIN [Concomitant]
     Active Substance: LEVOFLOXACIN
  3. HYDROCODONE [Concomitant]
     Active Substance: HYDROCODONE
     Route: 048

REACTIONS (3)
  - Pneumonia [Recovered/Resolved]
  - Depression [Not Recovered/Not Resolved]
  - Illness [Recovered/Resolved]

NARRATIVE: CASE EVENT DATE: 20221101
